FAERS Safety Report 5838712-5 (Version None)
Quarter: 2008Q3

REPORT INFORMATION
  Report Type: 
  Country: None (occurrence: None)
  Receive Date: 20080808
  Receipt Date: 20080729
  Transmission Date: 20090109
  Serious: Yes (Hospitalization)
  Sender: FDA-Public Use
  Company Number: B0531210A

PATIENT
  Age: 68 Year
  Sex: Male

DRUGS (9)
  1. ALLOPURINOL [Suspect]
     Dosage: 200MG PER DAY
     Route: 048
     Dates: start: 20080328, end: 20080429
  2. AUGMENTIN [Suspect]
     Indication: DRUG USE FOR UNKNOWN INDICATION
     Dosage: 1G THREE TIMES PER DAY
     Route: 048
     Dates: start: 20080502, end: 20080505
  3. COLCHIMAX [Suspect]
     Route: 048
     Dates: start: 20080328, end: 20080429
  4. ACETAMINOPHEN AND CODEINE PHOSPHATE [Concomitant]
     Route: 048
     Dates: start: 20080421, end: 20080502
  5. PERINDOPRIL ERBUMINE [Concomitant]
     Dosage: 4MG PER DAY
     Route: 065
  6. BISOPROLOL FUMARATE [Concomitant]
     Dosage: 10MG PER DAY
     Route: 065
     Dates: end: 20080502
  7. AMLOR [Concomitant]
     Dosage: 10MG PER DAY
     Route: 065
  8. ASPIRIN [Concomitant]
     Dosage: 75MG PER DAY
     Route: 065
  9. MOPRAL [Concomitant]
     Route: 065

REACTIONS (13)
  - BLOOD GLUCOSE INCREASED [None]
  - CHOLESTASIS [None]
  - DRUG RASH WITH EOSINOPHILIA AND SYSTEMIC SYMPTOMS [None]
  - DYSPNOEA [None]
  - ENDOCARDITIS [None]
  - EOSINOPHILIA [None]
  - HEPATOCELLULAR INJURY [None]
  - LEUKOCYTOSIS [None]
  - PRURIGO [None]
  - PYREXIA [None]
  - RALES [None]
  - RENAL FAILURE ACUTE [None]
  - RENAL FAILURE CHRONIC [None]
